FAERS Safety Report 14659237 (Version 1)
Quarter: 2018Q1

REPORT INFORMATION
  Report Type: Spontaneous
  Country: FR (occurrence: FR)
  Receive Date: 20180320
  Receipt Date: 20180320
  Transmission Date: 20180509
  Serious: Yes (Other)
  Sender: FDA-Public Use
  Company Number: FR-MERCK KGAA-2044124

PATIENT
  Age: 58 Year
  Sex: Female

DRUGS (1)
  1. NOVOTHYROX [Suspect]
     Active Substance: LEVOTHYROXINE SODIUM
     Indication: POST PROCEDURAL HYPOTHYROIDISM

REACTIONS (15)
  - Aggression [None]
  - Depressed mood [None]
  - Impaired work ability [None]
  - Arthralgia [None]
  - Malaise [None]
  - Palpitations [None]
  - Fatigue [None]
  - Gait disturbance [None]
  - Impatience [None]
  - Loss of personal independence in daily activities [None]
  - Insomnia [None]
  - Myalgia [None]
  - Muscle spasms [None]
  - Tremor [None]
  - Mood swings [None]

NARRATIVE: CASE EVENT DATE: 201709
